FAERS Safety Report 5171236-X (Version None)
Quarter: 2006Q4

REPORT INFORMATION
  Report Type: 
  Country: None (occurrence: None)
  Receive Date: 20061213
  Receipt Date: 20060531
  Transmission Date: 20070319
  Serious: Yes (Hospitalization)
  Sender: FDA-Public Use
  Company Number: US-AMGEN-STX181491

PATIENT
  Sex: Female

DRUGS (6)
  1. ENBREL [Suspect]
     Indication: RHEUMATOID ARTHRITIS
     Route: 058
     Dates: start: 20001201, end: 20031211
  2. PREDNISONE TAB [Concomitant]
  3. METHADONE HCL [Concomitant]
  4. NEXIUM [Concomitant]
  5. AMBIEN [Concomitant]
  6. BONIVA [Concomitant]

REACTIONS (3)
  - HAEMOCONCENTRATION [None]
  - OEDEMA PERIPHERAL [None]
  - UTERINE CANCER [None]
